FAERS Safety Report 5661879-9 (Version None)
Quarter: 2008Q1

REPORT INFORMATION
  Report Type: 
  Country: None (occurrence: None)
  Receive Date: 20080312
  Receipt Date: 20080310
  Transmission Date: 20080703
  Serious: Yes (Hospitalization)
  Sender: FDA-Public Use
  Company Number: FR-JNJFOC-20080301848

PATIENT
  Sex: Female

DRUGS (2)
  1. RISPERDAL [Suspect]
     Indication: AGITATION
     Route: 048
  2. PREDNISONE [Concomitant]
     Route: 048

REACTIONS (12)
  - ABASIA [None]
  - ACCIDENTAL OVERDOSE [None]
  - APHASIA [None]
  - DECUBITUS ULCER [None]
  - DRUG ADMINISTRATION ERROR [None]
  - DYSPNOEA [None]
  - EATING DISORDER [None]
  - FEEDING DISORDER [None]
  - IMPAIRED SELF-CARE [None]
  - SOMNOLENCE [None]
  - TACHYCARDIA [None]
  - UNRESPONSIVE TO STIMULI [None]
